FAERS Safety Report 11753278 (Version 1)
Quarter: 2015Q4

REPORT INFORMATION
  Report Type: Spontaneous
  Country: US (occurrence: US)
  Receive Date: 20151119
  Receipt Date: 20151119
  Transmission Date: 20160304
  Serious: No
  Sender: FDA-Public Use
  Company Number: US-ETHYPHARM USA CORP-2014ML000079

PATIENT

DRUGS (2)
  1. BENZODIAZEPINE DERIVATIVES [Concomitant]
     Active Substance: BENZODIAZEPINE
     Indication: PRODUCT USED FOR UNKNOWN INDICATION
  2. BUPRENORPHINE. [Suspect]
     Active Substance: BUPRENORPHINE
     Indication: DRUG DEPENDENCE

REACTIONS (6)
  - Thinking abnormal [Unknown]
  - Malaise [None]
  - Drug withdrawal syndrome [None]
  - Pain [Unknown]
  - Drug ineffective [Unknown]
  - Treatment noncompliance [None]
